FAERS Safety Report 19460043 (Version 1)
Quarter: 2021Q2

REPORT INFORMATION
  Report Type: Other
  Country: FR (occurrence: FR)
  Receive Date: 20210625
  Receipt Date: 20210625
  Transmission Date: 20210717
  Serious: Yes (Hospitalization)
  Sender: FDA-Public Use
  Company Number: FR-CELLTRION INC.-2018FR022281

PATIENT

DRUGS (4)
  1. RITUXIMAB (UNKNOWN) [Suspect]
     Active Substance: RITUXIMAB
     Indication: B-CELL LYMPHOMA
     Dosage: UNK
     Route: 041
     Dates: start: 20180221, end: 20180221
  2. RITUXIMAB (UNKNOWN) [Suspect]
     Active Substance: RITUXIMAB
     Dosage: UNK
     Route: 041
     Dates: start: 20180613, end: 20180613
  3. OXALIPLATINE [Suspect]
     Active Substance: OXALIPLATIN
     Indication: B-CELL LYMPHOMA
     Dosage: UNK
     Route: 041
     Dates: start: 20180221, end: 20180613
  4. GEMZAR [Suspect]
     Active Substance: GEMCITABINE HYDROCHLORIDE
     Indication: B-CELL LYMPHOMA
     Dosage: UNK
     Route: 041
     Dates: start: 20180221, end: 20180613

REACTIONS (2)
  - Diarrhoea [Recovered/Resolved]
  - Colitis [Not Recovered/Not Resolved]

NARRATIVE: CASE EVENT DATE: 20180630
